FAERS Safety Report 26127781 (Version 1)
Quarter: 2025Q4

REPORT INFORMATION
  Report Type: Spontaneous
  Country: US (occurrence: US)
  Receive Date: 20251206
  Receipt Date: 20251206
  Transmission Date: 20260117
  Serious: Yes (Other)
  Sender: AMNEAL
  Company Number: US-AMNEAL PHARMACEUTICALS-2025-AMRX-04677

PATIENT
  Age: 21 Year
  Sex: Male

DRUGS (6)
  1. FLUDROCORTISONE ACETATE [Suspect]
     Active Substance: FLUDROCORTISONE ACETATE
     Indication: Product used for unknown indication
     Dosage: UNK
     Route: 065
  2. CRENESSITY [Suspect]
     Active Substance: CRINECERFONT
     Indication: Adrenogenital syndrome
     Dosage: 200 MILLIGRAM, 2 /DAY
     Route: 048
     Dates: start: 2022
  3. HYDROCORTISONE [Concomitant]
     Active Substance: HYDROCORTISONE
     Indication: Product used for unknown indication
     Dosage: 25 MILLIGRAM
     Route: 065
  4. HYDROCORTISONE [Concomitant]
     Active Substance: HYDROCORTISONE
     Dosage: 17.5 MILLIGRAM
     Route: 065
     Dates: start: 202301
  5. HYDROCORTISONE [Concomitant]
     Active Substance: HYDROCORTISONE
     Dosage: 15 MILLIGRAM
     Route: 065
     Dates: start: 202510
  6. ZOLOFT [Concomitant]
     Active Substance: SERTRALINE HYDROCHLORIDE
     Indication: Anxiety
     Dosage: UNK
     Route: 065

REACTIONS (7)
  - Road traffic accident [Recovered/Resolved]
  - Syncope [Recovered/Resolved]
  - Vomiting [Recovered/Resolved]
  - Fatigue [Recovered/Resolved]
  - Dehydration [Recovered/Resolved]
  - Renin increased [Unknown]
  - Illness [Recovered/Resolved]

NARRATIVE: CASE EVENT DATE: 20250917
